FAERS Safety Report 12376468 (Version 8)
Quarter: 2019Q1

REPORT INFORMATION
  Report Type: Spontaneous
  Country: BR (occurrence: BR)
  Receive Date: 20160517
  Receipt Date: 20190204
  Transmission Date: 20190417
  Serious: Yes (Other)
  Sender: FDA-Public Use
  Company Number: BR-SA-2016SA093808

PATIENT
  Age: 72 Year
  Sex: Male
  Weight: 64 kg

DRUGS (17)
  1. METFORMIN [Concomitant]
     Active Substance: METFORMIN HYDROCHLORIDE
     Indication: DIABETES MELLITUS
     Dosage: 1 DF, QD
     Route: 048
  2. LANTUS [Suspect]
     Active Substance: INSULIN GLARGINE
     Dosage: 30 IU,UNK
     Route: 058
     Dates: start: 20140623
  3. NOVORAPID [Suspect]
     Active Substance: INSULIN ASPART
     Indication: TYPE 2 DIABETES MELLITUS
     Dosage: UNK UNK,UNK
     Route: 058
     Dates: start: 20140623
  4. BUFFERIN [Concomitant]
     Active Substance: ASPIRIN
     Dosage: UNK
     Route: 065
     Dates: start: 20140623
  5. LANTUS [Suspect]
     Active Substance: INSULIN GLARGINE
     Dosage: 28 IU,UNK
     Route: 058
     Dates: start: 20150121
  6. LANTUS [Suspect]
     Active Substance: INSULIN GLARGINE
     Dosage: 24 IU, QD
     Route: 058
     Dates: start: 2013
  7. NOVORAPID [Suspect]
     Active Substance: INSULIN ASPART
     Dosage: 9 IU,UNK
     Route: 058
     Dates: start: 20150121
  8. NOVORAPID [Suspect]
     Active Substance: INSULIN ASPART
     Dosage: 10 IU,UNK
     Route: 058
     Dates: start: 20150804
  9. CLINFAR [Concomitant]
     Active Substance: SIMVASTATIN
     Dosage: 10 MG,QD
     Route: 065
     Dates: start: 20140623
  10. CLOPIDOGREL [Concomitant]
     Active Substance: CLOPIDOGREL BISULFATE
     Dosage: UNK
     Route: 065
  11. LOSARTAN. [Concomitant]
     Active Substance: LOSARTAN
     Dosage: UNK
     Route: 065
     Dates: start: 20140623
  12. LANTUS [Suspect]
     Active Substance: INSULIN GLARGINE
     Dosage: 25 IU,UNK
     Route: 058
     Dates: start: 20150804
  13. LANTUS [Suspect]
     Active Substance: INSULIN GLARGINE
     Indication: TYPE 2 DIABETES MELLITUS
     Dosage: UNK UNK,QD
     Route: 058
     Dates: start: 2011
  14. LANTUS [Suspect]
     Active Substance: INSULIN GLARGINE
     Dosage: UNK UNK,UNK
     Route: 058
  15. NOVORAPID [Suspect]
     Active Substance: INSULIN ASPART
     Dosage: 1 DF, QD
     Route: 058
  16. METFORMIN [Concomitant]
     Active Substance: METFORMIN HYDROCHLORIDE
     Indication: MULTIPLE DRUG THERAPY
     Dosage: 4 DF,QD
     Route: 048
  17. LOSARTAN POTASSIUM. [Concomitant]
     Active Substance: LOSARTAN POTASSIUM
     Dosage: UNK
     Route: 065

REACTIONS (9)
  - Fall [Unknown]
  - Blood glucose increased [Recovering/Resolving]
  - Intentional product misuse [Unknown]
  - Neuropathy peripheral [Not Recovered/Not Resolved]
  - Glycosylated haemoglobin increased [Unknown]
  - Blood glucose increased [Recovered/Resolved]
  - Device operational issue [Unknown]
  - Cerebrovascular accident [Recovered/Resolved]
  - Blood glucose fluctuation [Recovered/Resolved]

NARRATIVE: CASE EVENT DATE: 20140623
